FAERS Safety Report 7572993-5 (Version None)
Quarter: 2011Q2

REPORT INFORMATION
  Report Type: 
  Country: None (occurrence: None)
  Receive Date: 20110627
  Receipt Date: 20110617
  Transmission Date: 20111010
  Serious: No
  Sender: FDA-Public Use
  Company Number: US-JNJFOC-20110609199

PATIENT
  Sex: Female
  Weight: 63.5 kg

DRUGS (7)
  1. FENTANYL-100 [Suspect]
     Indication: BACK PAIN
     Route: 062
     Dates: start: 20090401, end: 20090601
  2. FENTANYL CITRATE [Suspect]
     Indication: BACK PAIN
     Route: 062
     Dates: start: 20100901, end: 20110101
  3. FENTANYL-100 [Suspect]
     Route: 062
     Dates: start: 20100901
  4. FENTANYL-100 [Suspect]
     Indication: BACK PAIN
     Route: 062
     Dates: start: 20100901, end: 20110101
  5. PRAVACHOL [Concomitant]
     Indication: BLOOD CHOLESTEROL
     Route: 048
  6. NEURONTIN [Concomitant]
     Indication: NEURALGIA
     Route: 048
  7. VICODIN [Concomitant]
     Indication: BACK PAIN
     Dosage: 5/500  ONE AND HALF TABLETS
     Route: 048

REACTIONS (4)
  - WRONG TECHNIQUE IN DRUG USAGE PROCESS [None]
  - INAPPROPRIATE SCHEDULE OF DRUG ADMINISTRATION [None]
  - DRUG INEFFECTIVE [None]
  - PRODUCT QUALITY ISSUE [None]
